FAERS Safety Report 18078200 (Version 3)
Quarter: 2020Q3

REPORT INFORMATION
  Report Type: Spontaneous
  Country: DE (occurrence: DE)
  Receive Date: 20200727
  Receipt Date: 20200824
  Transmission Date: 20201103
  Serious: Yes (Hospitalization, Other)
  Sender: FDA-Public Use
  Company Number: NVSC2020DE201429

PATIENT
  Age: 49 Year
  Sex: Female
  Weight: 109 kg

DRUGS (17)
  1. L?THYROXIN HENNING [Concomitant]
     Active Substance: LEVOTHYROXINE SODIUM
     Indication: HYPOTHYROIDISM
     Dosage: UNK
     Route: 065
     Dates: start: 20160718
  2. PANTOPRAZOLE [Concomitant]
     Active Substance: PANTOPRAZOLE
     Indication: PROPHYLAXIS
     Dosage: UNK
     Route: 065
     Dates: start: 20171130
  3. AMOXICILLIN. [Concomitant]
     Active Substance: AMOXICILLIN
     Indication: PRODUCT USED FOR UNKNOWN INDICATION
     Dosage: UNK
     Route: 065
     Dates: start: 20200504, end: 20200510
  4. PALBOCICLIB [Suspect]
     Active Substance: PALBOCICLIB
     Indication: BREAST CANCER
     Dosage: 125 MILLIGRAM, QD
     Route: 048
     Dates: start: 20171215
  5. MELOXICAM. [Concomitant]
     Active Substance: MELOXICAM
     Indication: MUSCULOSKELETAL PAIN
     Dosage: UNK
     Route: 065
     Dates: start: 20190514
  6. ORTOTON [Concomitant]
     Indication: METASTASES TO BONE
     Dosage: UNK
     Route: 065
     Dates: start: 20180111, end: 20200319
  7. NOVALGIN [Concomitant]
     Indication: METASTASES TO BONE
     Dosage: UNK
     Route: 065
     Dates: start: 20171130, end: 20180319
  8. FULVESTRANT. [Suspect]
     Active Substance: FULVESTRANT
     Indication: BREAST CANCER
     Dosage: UNKNOWN
     Route: 030
     Dates: start: 20171215
  9. RIVAROXABAN [Concomitant]
     Active Substance: RIVAROXABAN
     Indication: HYPERCOAGULATION
     Dosage: UNK
     Route: 065
     Dates: start: 20160804
  10. GLAUPAX [Concomitant]
     Active Substance: ACETAZOLAMIDE
     Dosage: UNK
     Route: 065
     Dates: start: 20200220
  11. ELONTRIL [Concomitant]
     Active Substance: BUPROPION HYDROCHLORIDE
     Indication: DEPRESSION
     Dosage: UNK
     Route: 065
     Dates: start: 20180319, end: 20191005
  12. MIRTAZAPIN RATIOPHARM [Concomitant]
     Indication: DEPRESSION
     Dosage: UNK
     Route: 065
     Dates: start: 20170725, end: 20180514
  13. VITAMIN D [Concomitant]
     Active Substance: VITAMIN D NOS
     Indication: DEPRESSION
     Dosage: UNK
     Route: 065
     Dates: start: 20171130
  14. GLAUPAX [Concomitant]
     Active Substance: ACETAZOLAMIDE
     Indication: CATARACT
     Dosage: UNK
     Route: 065
     Dates: start: 20200127, end: 20200501
  15. MIRTAZAPIN RATIOPHARM [Concomitant]
     Dosage: UNK
     Route: 065
     Dates: start: 20180515
  16. CIPROBAY [Concomitant]
     Indication: NAIL BED INFLAMMATION
     Dosage: UNK
     Route: 065
     Dates: start: 20181011, end: 20181017
  17. XGEVA [Suspect]
     Active Substance: DENOSUMAB
     Indication: METASTASES TO BONE
     Dosage: UNKNOWN
     Route: 058
     Dates: start: 20160830

REACTIONS (2)
  - Osteonecrosis of jaw [Recovered/Resolved]
  - Fall [Unknown]

NARRATIVE: CASE EVENT DATE: 20200615
